FAERS Safety Report 8226862-8 (Version None)
Quarter: 2012Q1

REPORT INFORMATION
  Report Type: 
  Country: None (occurrence: None)
  Receive Date: 20120322
  Receipt Date: 20120312
  Transmission Date: 20120608
  Serious: Yes (Hospitalization, Other)
  Sender: FDA-Public Use
  Company Number: US-BAYER-2011-079855

PATIENT
  Age: 29 Year
  Sex: Female
  Weight: 63.492 kg

DRUGS (7)
  1. YAZ [Suspect]
     Indication: CONTRACEPTION
     Dosage: UNK
     Dates: start: 20090501, end: 20090727
  2. PENICILLIN [Concomitant]
     Indication: TOOTHACHE
     Dosage: UNK
     Dates: start: 20090628
  3. HYDROCODONE BITARTRATE [Concomitant]
     Dosage: UNK
     Dates: start: 20090630
  4. HYDROCODONE BITARTRATE [Concomitant]
     Dosage: UNK
  5. HYDROCODONE BITARTRATE [Concomitant]
     Dosage: UNK
     Dates: start: 20090630
  6. HYDROCODONE BITARTRATE [Concomitant]
     Dosage: UNK
     Dates: start: 20090630
  7. CEPHALEXIN [Concomitant]
     Dosage: UNK

REACTIONS (7)
  - GENERAL PHYSICAL HEALTH DETERIORATION [None]
  - CHOLELITHIASIS [None]
  - EMOTIONAL DISTRESS [None]
  - ANXIETY [None]
  - ABDOMINAL PAIN [None]
  - CHOLECYSTITIS CHRONIC [None]
  - MENTAL DISORDER [None]
